FAERS Safety Report 15143427 (Version 1)
Quarter: 2018Q3

REPORT INFORMATION
  Report Type: Spontaneous
  Country: US (occurrence: US)
  Receive Date: 20180618
  Receipt Date: 20180618
  Transmission Date: 20181010
  Serious: No
  Sender: FDA-Public Use
  Company Number: None

PATIENT
  Age: 76 Year
  Sex: Female
  Weight: 54 kg

DRUGS (10)
  1. BRIMONIDINE + DORZOLAMIDE [Concomitant]
  2. LEVOTHYROXINE. [Concomitant]
     Active Substance: LEVOTHYROXINE
  3. NAPROXEN. [Concomitant]
     Active Substance: NAPROXEN
  4. MAGNESIUM [Concomitant]
     Active Substance: MAGNESIUM
  5. LOPERAMIDE [Concomitant]
     Active Substance: LOPERAMIDE
  6. POTASSIUM [Concomitant]
     Active Substance: POTASSIUM
  7. ACTONEL [Concomitant]
     Active Substance: RISEDRONATE SODIUM
  8. LOW DOSE ASPIRIN [Concomitant]
     Active Substance: ASPIRIN
  9. BRIMONODINE TARTRATE OPHTHALMIC SOLUTION 0.2% [Suspect]
     Active Substance: BRIMONIDINE TARTRATE
     Indication: GLAUCOMA
     Dosage: ?          QUANTITY:1 GTT DROP(S);?
     Route: 001
  10. DIPHENOXYLATE ATROPINE [Concomitant]

REACTIONS (2)
  - Product use complaint [None]
  - Product quality issue [None]

NARRATIVE: CASE EVENT DATE: 20180503
